FAERS Safety Report 10035900 (Version 2)
Quarter: 2014Q1

REPORT INFORMATION
  Report Type: Spontaneous
  Country: PR (occurrence: PR)
  Receive Date: 20140325
  Receipt Date: 20140325
  Transmission Date: 20141002
  Serious: No
  Sender: FDA-Public Use
  Company Number: PR-BAXTER-2014BAX011121

PATIENT
  Sex: Female

DRUGS (12)
  1. 70% DEXTROSE INJECTION USP [Suspect]
     Indication: PARENTERAL NUTRITION
     Route: 065
     Dates: start: 20140228, end: 20140228
  2. POTASSIUM CHLORIDE 0.4MEQ/ML [Suspect]
     Indication: PRODUCT USED FOR UNKNOWN INDICATION
     Route: 065
     Dates: start: 20140228, end: 20140228
  3. 5% SODIUM CHLORIDE INJECTION [Suspect]
     Indication: PARENTERAL NUTRITION
     Route: 065
     Dates: start: 20140228, end: 20140228
  4. 10% PREMASOL [Suspect]
     Indication: PARENTERAL NUTRITION
     Route: 065
     Dates: start: 20140228, end: 20140228
  5. STERILE WATER FOR INJECTION USP [Suspect]
     Indication: PARENTERAL NUTRITION
     Route: 065
     Dates: start: 20140228, end: 20140228
  6. INTRALIPID [Suspect]
     Indication: PARENTERAL NUTRITION
     Route: 065
     Dates: start: 20140228, end: 20140228
  7. CA GLUCONATE [Suspect]
     Indication: PARENTERAL NUTRITION
     Route: 065
     Dates: start: 20140228, end: 20140228
  8. POTASSIUM PHOSPHATE [Concomitant]
     Indication: PARENTERAL NUTRITION
     Route: 065
     Dates: start: 20140228, end: 20140228
  9. MG SULFATE [Concomitant]
     Indication: PARENTERAL NUTRITION
     Route: 065
     Dates: start: 20140228, end: 20140228
  10. HEPARIN PRESERVATIVE FREE [Concomitant]
     Indication: PARENTERAL NUTRITION
     Route: 065
     Dates: start: 20140228, end: 20140228
  11. L-CARNITINE [Concomitant]
     Indication: PARENTERAL NUTRITION
     Route: 065
     Dates: start: 20140228, end: 20140228
  12. MVI PEDIATRIC [Concomitant]
     Indication: PARENTERAL NUTRITION
     Route: 065
     Dates: start: 20140228, end: 20140228

REACTIONS (3)
  - Product compounding quality issue [Recovered/Resolved]
  - Incorrect dose administered [Recovered/Resolved]
  - No adverse event [Recovered/Resolved]
